FAERS Safety Report 15805486 (Version 2)
Quarter: 2025Q1

REPORT INFORMATION
  Report Type: Spontaneous
  Country: IT (occurrence: IT)
  Receive Date: 20190110
  Receipt Date: 20250312
  Transmission Date: 20250409
  Serious: Yes (Hospitalization, Other)
  Sender: AUROBINDO
  Company Number: IT-AUROBINDO-AUR-APL-2019-000194

PATIENT
  Age: 68 Year
  Sex: Female

DRUGS (7)
  1. LEVETIRACETAM [Suspect]
     Active Substance: LEVETIRACETAM
     Indication: Generalised tonic-clonic seizure
     Dosage: 250 MILLIGRAM, TWO TIMES A DAY
     Route: 065
  2. LEVETIRACETAM [Suspect]
     Active Substance: LEVETIRACETAM
     Dosage: 500 MILLIGRAM, TWO TIMES A DAY
     Route: 065
  3. LORAZEPAM [Concomitant]
     Active Substance: LORAZEPAM
     Indication: Generalised tonic-clonic seizure
     Route: 065
  4. ALPRAZOLAM [Concomitant]
     Active Substance: ALPRAZOLAM
     Indication: Generalised tonic-clonic seizure
     Route: 065
  5. VALPROATE [Concomitant]
     Active Substance: VALPROIC ACID
     Indication: Generalised tonic-clonic seizure
     Dosage: 500 MILLIGRAM, TWO TIMES A DAY
     Route: 065
  6. METHYLPREDNISOLONE [Concomitant]
     Active Substance: METHYLPREDNISOLONE
     Indication: Generalised tonic-clonic seizure
     Route: 065
  7. FUROSEMIDE [Concomitant]
     Active Substance: FUROSEMIDE
     Indication: Generalised tonic-clonic seizure
     Route: 065

REACTIONS (15)
  - Delusion [Recovered/Resolved]
  - Delirium [Recovered/Resolved]
  - Acute psychosis [Recovered/Resolved]
  - Disorientation [Unknown]
  - Confusional state [Unknown]
  - Fall [Unknown]
  - Head injury [Unknown]
  - Hallucination, visual [Recovered/Resolved]
  - Hypoxia [Unknown]
  - Overdose [Recovered/Resolved]
  - Influenza like illness [Unknown]
  - Cough [Unknown]
  - Agitation [Unknown]
  - Somnolence [Unknown]
  - Sleep disorder [Unknown]
